FAERS Safety Report 14196867 (Version 1)
Quarter: 2017Q4

REPORT INFORMATION
  Report Type: Spontaneous
  Country: US (occurrence: US)
  Receive Date: 20171116
  Receipt Date: 20171116
  Transmission Date: 20180321
  Serious: No
  Sender: FDA-Public Use
  Company Number: US-SA-2017SA194385

PATIENT
  Age: 53 Year
  Sex: Female

DRUGS (7)
  1. XANAX [Concomitant]
     Active Substance: ALPRAZOLAM
     Route: 065
  2. VITAMIN C [Concomitant]
     Active Substance: ASCORBIC ACID
     Route: 065
  3. RENVELA [Suspect]
     Active Substance: SEVELAMER CARBONATE
     Indication: BLOOD PHOSPHORUS ABNORMAL
     Route: 065
     Dates: start: 20170925
  4. CRESTOR [Concomitant]
     Active Substance: ROSUVASTATIN CALCIUM
     Route: 065
  5. VITAMIN D [Concomitant]
     Active Substance: CHOLECALCIFEROL
     Route: 065
  6. LISINOPRIL. [Interacting]
     Active Substance: LISINOPRIL
     Indication: RENAL DISORDER
     Route: 065
  7. ESTER-C [Concomitant]
     Active Substance: CALCIUM\VITAMINS
     Route: 065

REACTIONS (2)
  - Hypertension [Not Recovered/Not Resolved]
  - Drug interaction [Unknown]
